FAERS Safety Report 6449009-7 (Version None)
Quarter: 2009Q4

REPORT INFORMATION
  Report Type: 
  Country: None (occurrence: None)
  Receive Date: 20091120
  Receipt Date: 20091117
  Transmission Date: 20100525
  Serious: Yes (Hospitalization)
  Sender: FDA-Public Use
  Company Number: A0818222A

PATIENT
  Age: 71 Year
  Sex: Female

DRUGS (1)
  1. AVANDIA [Suspect]
     Dosage: 2MG PER DAY
     Route: 065
     Dates: start: 20050101, end: 20090101

REACTIONS (2)
  - HYPOACUSIS [None]
  - VISUAL IMPAIRMENT [None]
